FAERS Safety Report 14948122 (Version 5)
Quarter: 2018Q3

REPORT INFORMATION
  Report Type: Spontaneous
  Country: FI (occurrence: FI)
  Receive Date: 20180529
  Receipt Date: 20180718
  Transmission Date: 20181010
  Serious: Yes (Other)
  Sender: FDA-Public Use
  Company Number: FI-PFIZER INC-2018210790

PATIENT
  Age: 55 Year
  Sex: Female

DRUGS (4)
  1. METHOTREXATE PFIZER [Suspect]
     Active Substance: METHOTREXATE
     Indication: PSORIATIC ARTHROPATHY
     Dosage: 1 ML CYTOSTATICUM
  2. METHOTREXATE PFIZER [Suspect]
     Active Substance: METHOTREXATE
     Indication: RHEUMATIC DISORDER
  3. METHOTREXATE SODIUM. [Suspect]
     Active Substance: METHOTREXATE SODIUM
     Indication: PSORIATIC ARTHROPATHY
     Dosage: UNK
  4. METHOTREXATE SODIUM. [Suspect]
     Active Substance: METHOTREXATE SODIUM
     Indication: RHEUMATIC DISORDER

REACTIONS (8)
  - Skin atrophy [Unknown]
  - Blood urine present [Unknown]
  - Drug administration error [Unknown]
  - Alopecia [Unknown]
  - Fatigue [Unknown]
  - Nausea [Unknown]
  - Bladder cancer [Unknown]
  - Nasopharyngitis [Unknown]
